FAERS Safety Report 9939222 (Version 1)
Quarter: 2014Q1

REPORT INFORMATION
  Report Type: Report from Study
  Country: US (occurrence: US)
  Receive Date: 20140303
  Receipt Date: 20140303
  Transmission Date: 20141002
  Serious: No
  Sender: FDA-Public Use
  Company Number: US-ABBVIE-13P-163-1037373-00

PATIENT
  Age: 44 Year
  Sex: Male
  Weight: 124.85 kg

DRUGS (2)
  1. HUMIRA [Suspect]
     Indication: CROHN^S DISEASE
     Route: 058
     Dates: start: 2009, end: 201301
  2. HUMIRA [Suspect]
     Route: 058
     Dates: start: 201301

REACTIONS (1)
  - Influenza [Recovered/Resolved]
